FAERS Safety Report 7263211-6 (Version None)
Quarter: 2011Q1

REPORT INFORMATION
  Report Type: 
  Country: None (occurrence: None)
  Receive Date: 20110130
  Receipt Date: 20101013
  Transmission Date: 20110831
  Serious: No
  Sender: FDA-Public Use
  Company Number: US-ABBOTT-10P-163-0678065-00

PATIENT
  Age: 33 Year
  Sex: Female

DRUGS (5)
  1. HUMIRA [Suspect]
  2. CELEXA [Concomitant]
     Indication: ANXIETY
     Dosage: 40 MG DAILY
  3. VIT D [Concomitant]
     Indication: PRODUCT USED FOR UNKNOWN INDICATION
  4. HUMIRA [Suspect]
     Indication: CROHN'S DISEASE
     Dosage: 160 MG REPEAT OF LOADING DOSE
     Dates: start: 20100128, end: 20100128
  5. UNKNOWN MEDICATION [Concomitant]
     Indication: OSTEOPOROSIS
     Dosage: UNKNOWN

REACTIONS (2)
  - CROHN'S DISEASE [None]
  - DEVICE MALFUNCTION [None]
